FAERS Safety Report 9524781 (Version 3)
Quarter: 2014Q4

REPORT INFORMATION
  Report Type: Spontaneous
  Country: US (occurrence: US)
  Receive Date: 20130916
  Receipt Date: 20141215
  Transmission Date: 20150529
  Serious: Yes (Hospitalization, Other)
  Sender: FDA-Public Use
  Company Number: US-BAYER-2013-111038

PATIENT
  Age: 29 Year
  Sex: Female
  Weight: 63.49 kg

DRUGS (10)
  1. PRENATAL [Concomitant]
     Active Substance: VITAMINS
     Dosage: EVERY DAY
     Route: 048
     Dates: start: 20130204
  2. ZOFRAN [Concomitant]
     Active Substance: ONDANSETRON HYDROCHLORIDE
     Dosage: 4 MG, BID
     Dates: start: 20130204
  3. ACETAMINOPHEN. [Concomitant]
     Active Substance: ACETAMINOPHEN
     Dosage: 325 MG, EVERY 6 HOURS
     Dates: start: 20130204
  4. MACROBID [Concomitant]
     Active Substance: NITROFURANTOIN\NITROFURANTOIN MONOHYDRATE
     Dosage: 100 MG, BID
     Dates: start: 20130204
  5. IRON [Concomitant]
     Active Substance: IRON
  6. MOTRIN [Concomitant]
     Active Substance: IBUPROFEN
     Indication: MENORRHAGIA
  7. CLINDAMYCIN HYDROCHLORIDE. [Concomitant]
     Active Substance: CLINDAMYCIN HYDROCHLORIDE
     Dosage: 150 MG, BID 7 DAYS
     Route: 048
     Dates: start: 20121214
  8. VICODIN [Concomitant]
     Active Substance: ACETAMINOPHEN\HYDROCODONE BITARTRATE
     Indication: PROCEDURAL PAIN
  9. MIRENA [Suspect]
     Active Substance: LEVONORGESTREL
     Indication: CONTRACEPTION
     Dosage: 20 MCG/24HR, CONT
     Route: 015
     Dates: start: 20120726, end: 20130221
  10. MAGNESIUM CITRATE. [Concomitant]
     Active Substance: MAGNESIUM CITRATE
     Dosage: 300 ML, UNK
     Route: 048
     Dates: start: 20130204

REACTIONS (15)
  - Menorrhagia [None]
  - Uterine perforation [None]
  - Complication of device removal [None]
  - Medical device discomfort [None]
  - Device failure [None]
  - Ectopic pregnancy with contraceptive device [None]
  - Drug ineffective [None]
  - Injury [None]
  - Pain [None]
  - Emotional distress [None]
  - Scar [None]
  - Device breakage [None]
  - Depression [None]
  - Fear [None]
  - Infertility female [None]

NARRATIVE: CASE EVENT DATE: 201207
